FAERS Safety Report 9264242 (Version 1)
Quarter: 2013Q2

REPORT INFORMATION
  Report Type: Spontaneous
  Country: US (occurrence: US)
  Receive Date: 20130430
  Receipt Date: 20130430
  Transmission Date: 20140414
  Serious: No
  Sender: FDA-Public Use
  Company Number: US-009507513-1304USA013896

PATIENT
  Sex: Female
  Weight: 81.63 kg

DRUGS (7)
  1. SINEMET [Suspect]
     Dosage: FIVE TIMES A DAY
     Route: 048
  2. AZILECT [Suspect]
     Dosage: 1 MG, QPM
     Dates: start: 201303
  3. AMANTADINE HYDROCHLORIDE [Concomitant]
  4. ATENOLOL [Concomitant]
  5. SULINDAC [Concomitant]
  6. CELEXA [Concomitant]
  7. FLEXERIL [Concomitant]
     Indication: JOINT STIFFNESS
     Dosage: UNK, QW

REACTIONS (5)
  - Menstruation irregular [Unknown]
  - Musculoskeletal stiffness [Unknown]
  - Joint stiffness [Unknown]
  - Muscle rigidity [Unknown]
  - Drug ineffective [Unknown]
